FAERS Safety Report 16678706 (Version 1)
Quarter: 2019Q3

REPORT INFORMATION
  Report Type: Spontaneous
  Country: US (occurrence: US)
  Receive Date: 20190806
  Receipt Date: 20190806
  Transmission Date: 20191007
  Serious: Yes (Other)
  Sender: FDA-Public Use
  Company Number: None

PATIENT
  Age: 39 Year
  Sex: Female
  Weight: 54 kg

DRUGS (4)
  1. MULTI VITAMIN [Concomitant]
     Active Substance: VITAMINS
  2. BACTINE MAX [Suspect]
     Active Substance: BENZALKONIUM CHLORIDE\LIDOCAINE HYDROCHLORIDE
     Indication: ARTHROPOD BITE
     Route: 061
  3. VITAMIN D [Concomitant]
     Active Substance: VITAMIN D NOS
  4. BACTINE MAX [Suspect]
     Active Substance: BENZALKONIUM CHLORIDE\LIDOCAINE HYDROCHLORIDE
     Indication: SKIN LACERATION
     Route: 061

REACTIONS (5)
  - Pharyngeal swelling [None]
  - Feeling jittery [None]
  - Palpitations [None]
  - Hypersensitivity [None]
  - Dysphagia [None]

NARRATIVE: CASE EVENT DATE: 20190806
